FAERS Safety Report 7455192-7 (Version None)
Quarter: 2011Q2

REPORT INFORMATION
  Report Type: 
  Country: None (occurrence: None)
  Receive Date: 20110503
  Receipt Date: 20110420
  Transmission Date: 20111010
  Serious: Yes (Other)
  Sender: FDA-Public Use
  Company Number: PHHY2011SI31556

PATIENT
  Age: 63 Year
  Sex: Female

DRUGS (2)
  1. CORTICOSTEROIDS [Concomitant]
  2. EXJADE [Suspect]
     Indication: HAEMOSIDEROSIS
     Dosage: 1500 MG (20 MG/KG), DAILY
     Dates: start: 20090904

REACTIONS (6)
  - WHITE BLOOD CELL COUNT DECREASED [None]
  - PLATELET COUNT DECREASED [None]
  - THORACIC VERTEBRAL FRACTURE [None]
  - OSTEOPOROSIS [None]
  - FALL [None]
  - HAEMOGLOBIN DECREASED [None]
